FAERS Safety Report 6170945-3 (Version None)
Quarter: 2009Q2

REPORT INFORMATION
  Report Type: 
  Country: None (occurrence: None)
  Receive Date: 20090429
  Receipt Date: 20090421
  Transmission Date: 20091009
  Serious: Yes (Hospitalization)
  Sender: FDA-Public Use
  Company Number: US-BAYER-200918459NA

PATIENT
  Sex: Female

DRUGS (3)
  1. BETASERON [Suspect]
     Indication: RELAPSING-REMITTING MULTIPLE SCLEROSIS
     Route: 058
     Dates: start: 20060101, end: 20090201
  2. TYSABRI [Concomitant]
     Indication: RELAPSING-REMITTING MULTIPLE SCLEROSIS
     Dates: start: 20090421
  3. SYNTHROID [Concomitant]
     Indication: BASEDOW'S DISEASE

REACTIONS (1)
  - MULTIPLE SCLEROSIS RELAPSE [None]
